FAERS Safety Report 7755224-2 (Version None)
Quarter: 2011Q3

REPORT INFORMATION
  Report Type: 
  Country: None (occurrence: None)
  Receive Date: 20110914
  Receipt Date: 20110901
  Transmission Date: 20111222
  Serious: Yes (Other)
  Sender: FDA-Public Use
  Company Number: 2011NL0255

PATIENT
  Age: 7 Day
  Sex: Female

DRUGS (1)
  1. NITISINONE (NITISINONE) [Suspect]
     Indication: TYROSINAEMIA

REACTIONS (6)
  - ECZEMA [None]
  - MYOCLONUS [None]
  - AMINO ACID LEVEL DECREASED [None]
  - PSYCHOMOTOR SKILLS IMPAIRED [None]
  - FAILURE TO THRIVE [None]
  - AMINO ACID LEVEL INCREASED [None]
